FAERS Safety Report 13981680 (Version 1)
Quarter: 2017Q3

REPORT INFORMATION
  Report Type: Spontaneous
  Country: US (occurrence: US)
  Receive Date: 20170918
  Receipt Date: 20170918
  Transmission Date: 20171128
  Serious: No
  Sender: FDA-Public Use
  Company Number: US-BION-005822

PATIENT
  Age: 48 Year
  Sex: Male
  Weight: 72.58 kg

DRUGS (1)
  1. ZYRTEC [Suspect]
     Active Substance: CETIRIZINE HYDROCHLORIDE
     Indication: HYPERSENSITIVITY
     Dosage: TOOK 2 OF THESE LIQUIDGEL IN 24 HOURS (TWICE IN UNDER 24 HOURS)
     Route: 048

REACTIONS (2)
  - Intentional product misuse [Not Recovered/Not Resolved]
  - Incorrect dose administered [Not Recovered/Not Resolved]
